FAERS Safety Report 19539166 (Version 4)
Quarter: 2021Q3

REPORT INFORMATION
  Report Type: Spontaneous
  Country: US (occurrence: US)
  Receive Date: 20210713
  Receipt Date: 20210824
  Transmission Date: 20211014
  Serious: Yes (Other)
  Sender: FDA-Public Use
  Company Number: US-JNJFOC-20210706767

PATIENT
  Age: 73 Year
  Sex: Male
  Weight: 59.02 kg

DRUGS (4)
  1. BALVERSA [Suspect]
     Active Substance: ERDAFITINIB
     Route: 048
     Dates: start: 20210802
  2. BALVERSA [Suspect]
     Active Substance: ERDAFITINIB
     Dosage: JJL6J00? 31/OCT/2022
     Route: 048
     Dates: start: 20210526
  3. BALVERSA [Suspect]
     Active Substance: ERDAFITINIB
     Indication: METASTATIC CARCINOMA OF THE BLADDER
     Dosage: PRESCRIPTION NUMBER: 55?57560552.
     Route: 048
     Dates: start: 20210610, end: 20210705
  4. LISINOPRIL. [Concomitant]
     Active Substance: LISINOPRIL
     Indication: BLOOD PRESSURE MEASUREMENT
     Dosage: LONG TIME
     Route: 065

REACTIONS (21)
  - Eye disorder [Recovered/Resolved]
  - Blood phosphorus increased [Recovered/Resolved]
  - Dry mouth [Recovered/Resolved]
  - Hair growth abnormal [Recovered/Resolved]
  - Retinal detachment [Recovered/Resolved]
  - Lacrimation increased [Recovered/Resolved]
  - Discomfort [Recovered/Resolved]
  - Ageusia [Recovered/Resolved]
  - Diarrhoea [Recovered/Resolved]
  - Alopecia [Recovered/Resolved]
  - Pain in extremity [Recovered/Resolved]
  - Skin atrophy [Recovered/Resolved]
  - Throat tightness [Recovered/Resolved]
  - Flatulence [Recovered/Resolved]
  - Muscle spasms [Recovered/Resolved]
  - Flushing [Recovered/Resolved]
  - Dry skin [Recovered/Resolved]
  - Stomatitis [Recovered/Resolved]
  - Abdominal discomfort [Recovered/Resolved]
  - Pharyngeal swelling [Recovered/Resolved]
  - Onychalgia [Recovered/Resolved]

NARRATIVE: CASE EVENT DATE: 20210610
